FAERS Safety Report 22343836 (Version 1)
Quarter: 2023Q2

REPORT INFORMATION
  Report Type: Spontaneous
  Country: RU (occurrence: RU)
  Receive Date: 20230519
  Receipt Date: 20230519
  Transmission Date: 20230722
  Serious: Yes (Other)
  Sender: FDA-Public Use
  Company Number: RU-MLMSERVICE-20230503-4264243-1

PATIENT
  Age: 3 Year
  Sex: Male

DRUGS (6)
  1. CISPLATIN [Suspect]
     Active Substance: CISPLATIN
     Indication: Brain cancer metastatic
     Dosage: 3 CYCLES OF INTENSIFIED INDUCTION
     Dates: start: 201708, end: 2017
  2. ETOPOSIDE [Suspect]
     Active Substance: ETOPOSIDE
     Indication: Medulloblastoma
     Dosage: 3 CYCLES OF INTENSIFIED INDUCTION
     Dates: start: 201708, end: 2017
  3. METHOTREXATE [Suspect]
     Active Substance: METHOTREXATE
     Indication: Medulloblastoma
     Dosage: 3 CYCLES OF INTENSIFIED INDUCTION- HIGH DOSE
     Dates: start: 201708, end: 2017
  4. ETOPOSIDE [Suspect]
     Active Substance: ETOPOSIDE
     Indication: Brain cancer metastatic
     Dosage: 3 CYCLES OF INTENSIFIED INDUCTION
     Dates: start: 201708, end: 2017
  5. CISPLATIN [Suspect]
     Active Substance: CISPLATIN
     Indication: Metastases to spine
     Dosage: 3 CYCLES OF INTENSIFIED INDUCTION
     Dates: start: 201708, end: 2017
  6. METHOTREXATE [Suspect]
     Active Substance: METHOTREXATE
     Indication: Metastases to spine
     Dosage: 3 CYCLES OF INTENSIFIED INDUCTION- HIGH DOSE
     Route: 042
     Dates: start: 201708, end: 2017

REACTIONS (6)
  - Febrile neutropenia [Unknown]
  - Haematological infection [Unknown]
  - Device related infection [Unknown]
  - Myelosuppression [Unknown]
  - Dermatitis [Unknown]
  - Hepatitis toxic [Unknown]

NARRATIVE: CASE EVENT DATE: 20170101
